FAERS Safety Report 7390358-6 (Version None)
Quarter: 2011Q2

REPORT INFORMATION
  Report Type: 
  Country: None (occurrence: None)
  Receive Date: 20110401
  Receipt Date: 20110325
  Transmission Date: 20111010
  Serious: Yes (Hospitalization)
  Sender: FDA-Public Use
  Company Number: FR-B.I. PHARMACEUTICALS,INC./RIDGEFIELD-2011-FF-00305FF

PATIENT
  Sex: Male

DRUGS (5)
  1. PARACETAMOL [Concomitant]
     Dosage: 4 G
  2. CORTANCYL [Suspect]
     Route: 048
     Dates: start: 20101012, end: 20101025
  3. BACTRIM [Suspect]
     Route: 048
     Dates: start: 20101012, end: 20101025
  4. LEXOMIL [Concomitant]
     Route: 048
  5. TAMSULOSIN HCL [Suspect]
     Route: 048
     Dates: start: 20101012, end: 20101025

REACTIONS (2)
  - HEPATITIS CHOLESTATIC [None]
  - PROSTATITIS [None]
